FAERS Safety Report 18357895 (Version 2)
Quarter: 2020Q4

REPORT INFORMATION
  Report Type: Other
  Country: US (occurrence: US)
  Receive Date: 20201007
  Receipt Date: 20201016
  Transmission Date: 20210114
  Serious: Yes (Hospitalization, Other)
  Sender: FDA-Public Use
  Company Number: US-STANDARD HOMEOPATHIC COMPANY-2092535

PATIENT

DRUGS (5)
  1. ARNICA 30X TABLETS [Suspect]
     Active Substance: ARNICA MONTANA\HERBALS\HOMEOPATHICS
     Indication: CONTUSION
     Route: 048
     Dates: start: 20200921, end: 20200921
  2. ARNICA 30X TABLETS [Suspect]
     Active Substance: ARNICA MONTANA\HERBALS\HOMEOPATHICS
     Indication: MUSCULOSKELETAL STIFFNESS
     Route: 048
     Dates: start: 20200921, end: 20200921
  3. ARNICA 30X TABLETS [Suspect]
     Active Substance: ARNICA MONTANA\HERBALS\HOMEOPATHICS
     Indication: MYALGIA
     Route: 048
     Dates: start: 20200921, end: 20200921
  4. ARNICA 30X TABLETS [Suspect]
     Active Substance: ARNICA MONTANA\HERBALS\HOMEOPATHICS
     Indication: SWELLING
     Route: 048
     Dates: start: 20200921, end: 20200921
  5. ARNICA 30X TABLETS [Suspect]
     Active Substance: ARNICA MONTANA\HERBALS\HOMEOPATHICS
     Indication: PAIN
     Route: 048
     Dates: start: 20200921, end: 20200921

REACTIONS (2)
  - Pneumonitis [Unknown]
  - Dermatitis [None]

NARRATIVE: CASE EVENT DATE: 20200921
